FAERS Safety Report 6611591-4 (Version None)
Quarter: 2010Q1

REPORT INFORMATION
  Report Type: 
  Country: None (occurrence: None)
  Receive Date: 20100218
  Receipt Date: 20090529
  Transmission Date: 20100710
  Serious: Yes (Other)
  Sender: FDA-Public Use
  Company Number: E-09-165

PATIENT
  Sex: Female

DRUGS (6)
  1. HYDROCODONE BITARTRATE AND ACETAMINOPHEN [Suspect]
     Indication: PAIN
     Dosage: ONE P.O. Q.I.D.
     Route: 048
     Dates: start: 20090401
  2. FENTANYL [Concomitant]
  3. CYCLOPENZAPRINE [Concomitant]
  4. GABAPENTIN [Concomitant]
  5. PROMETHAZINE [Concomitant]
  6. CYMBALTA [Concomitant]

REACTIONS (1)
  - DRUG SCREEN POSITIVE [None]
